FAERS Safety Report 5954530-1 (Version None)
Quarter: 2008Q4

REPORT INFORMATION
  Report Type: 
  Country: None (occurrence: None)
  Receive Date: 20081117
  Receipt Date: 20081106
  Transmission Date: 20090506
  Serious: Yes (Other)
  Sender: FDA-Public Use
  Company Number: US-ROCHE-595740

PATIENT
  Sex: Female
  Weight: 83 kg

DRUGS (1)
  1. CAPECITABINE [Suspect]
     Indication: BREAST CANCER
     Dosage: 7 TABLETS DAILY
     Route: 065
     Dates: start: 20080301

REACTIONS (1)
  - DISEASE PROGRESSION [None]
